FAERS Safety Report 8940220 (Version 1)
Quarter: 2012Q4

REPORT INFORMATION
  Report Type: 
  Country: FR (occurrence: FR)
  Receive Date: 20121130
  Receipt Date: 20121130
  Transmission Date: 20130627
  Serious: Yes (Hospitalization)
  Sender: FDA-Public Use
  Company Number: FR-ABBOTT-12P-056-1013072-00

PATIENT
  Age: 49 Year
  Sex: Female

DRUGS (5)
  1. DEPAKINE CHRONO [Suspect]
     Indication: EPILEPSY
     Route: 048
  2. RIFADINE [Interacting]
     Indication: DEVICE RELATED INFECTION
     Route: 042
     Dates: start: 20120913, end: 20120920
  3. CILASTATIN W/IMIPENEM [Interacting]
     Indication: DEVICE RELATED INFECTION
     Route: 041
     Dates: start: 20120912, end: 20120920
  4. URBANYL [Interacting]
     Indication: PRODUCT USED FOR UNKNOWN INDICATION
     Dates: start: 20120920
  5. METHADONE [Interacting]
     Indication: PRODUCT USED FOR UNKNOWN INDICATION

REACTIONS (2)
  - Convulsion [Unknown]
  - Drug interaction [Unknown]
